FAERS Safety Report 4543002-7 (Version None)
Quarter: 2005Q1

REPORT INFORMATION
  Report Type: 
  Country: None (occurrence: None)
  Receive Date: 20050103
  Receipt Date: 20041222
  Transmission Date: 20050727
  Serious: Yes (Other)
  Sender: FDA-Public Use
  Company Number: US-JNJFOC-20041206511

PATIENT
  Age: 61 Year
  Sex: Female

DRUGS (2)
  1. REMICADE [Suspect]
     Indication: RHEUMATOID ARTHRITIS
     Route: 042
  2. FLUCONAZOLE [Concomitant]

REACTIONS (4)
  - CONDITION AGGRAVATED [None]
  - CRYPTOCOCCOSIS [None]
  - PULMONARY CAVITATION [None]
  - RHEUMATOID ARTHRITIS [None]
